FAERS Safety Report 19747855 (Version 1)
Quarter: 2021Q3

REPORT INFORMATION
  Report Type: Spontaneous
  Country: US (occurrence: US)
  Receive Date: 20210825
  Receipt Date: 20210825
  Transmission Date: 20211014
  Serious: No
  Sender: FDA-Public Use
  Company Number: US-BANNER LIFE SCIENCES, LLC-2021BAN000057

PATIENT

DRUGS (2)
  1. BAFIERTAM [Suspect]
     Active Substance: MONOMETHYL FUMARATE
     Indication: MULTIPLE SCLEROSIS
     Dosage: 95 MG, BID
     Dates: start: 20210617
  2. ASPIRIN                            /00002701/ [Suspect]
     Active Substance: ASPIRIN
     Indication: PRODUCT USED FOR UNKNOWN INDICATION
     Dosage: UNK
     Dates: start: 20210617

REACTIONS (5)
  - Pruritus [Unknown]
  - Chills [Unknown]
  - Influenza like illness [Unknown]
  - Pain [Unknown]
  - Dermatitis [Unknown]
